FAERS Safety Report 15828218 (Version 1)
Quarter: 2019Q1

REPORT INFORMATION
  Report Type: Spontaneous
  Country: US (occurrence: US)
  Receive Date: 20190115
  Receipt Date: 20190115
  Transmission Date: 20190417
  Serious: No
  Sender: FDA-Public Use
  Company Number: US-ALLERGAN-1814095US

PATIENT
  Sex: Female

DRUGS (7)
  1. RESTASIS [Suspect]
     Active Substance: CYCLOSPORINE
     Dosage: UNK, QHS
     Route: 047
  2. VALIUM [Concomitant]
     Active Substance: DIAZEPAM
     Indication: PAIN
     Dosage: 5 MG, QD
     Route: 065
  3. REFRESH [Concomitant]
     Active Substance: UNSPECIFIED INGREDIENT
     Indication: PRODUCT USED FOR UNKNOWN INDICATION
     Dosage: UNK, AS NEEDED
     Route: 047
  4. RESTASIS [Suspect]
     Active Substance: CYCLOSPORINE
     Dosage: 2 GTT, BID (MORNING AND NIGHT)
     Route: 047
  5. ANTIHISTAMINES [Concomitant]
     Active Substance: ANTIHISTAMINES NOS
     Indication: HYPERSENSITIVITY
     Dosage: UNK
     Route: 065
  6. RESTASIS [Suspect]
     Active Substance: CYCLOSPORINE
     Indication: DRY EYE
     Dosage: UNK, BID
     Route: 047
  7. AMBIEN [Concomitant]
     Active Substance: ZOLPIDEM TARTRATE
     Dosage: 2.5 OR 5 MG, TWICE A WEEK
     Route: 065

REACTIONS (6)
  - Eye irritation [Recovering/Resolving]
  - Product dose omission [Unknown]
  - Dry eye [Unknown]
  - Lacrimation increased [Recovering/Resolving]
  - Inappropriate schedule of product administration [Unknown]
  - Impaired driving ability [Unknown]
